FAERS Safety Report 9808628 (Version 3)
Quarter: 2014Q1

REPORT INFORMATION
  Report Type: Spontaneous
  Country: US (occurrence: US)
  Receive Date: 20140110
  Receipt Date: 20140305
  Transmission Date: 20141002
  Serious: Yes (Other)
  Sender: FDA-Public Use
  Company Number: US-JNJFOC-20140101808

PATIENT
  Age: 62 Year
  Sex: Female
  Weight: 95.26 kg

DRUGS (18)
  1. REMICADE [Suspect]
     Indication: RHEUMATOID ARTHRITIS
     Route: 042
  2. REMICADE [Suspect]
     Indication: RHEUMATOID ARTHRITIS
     Route: 042
     Dates: start: 201210
  3. REMICADE [Suspect]
     Indication: RHEUMATOID ARTHRITIS
     Route: 042
     Dates: start: 20131220
  4. BENADRYL [Concomitant]
     Indication: MULTIPLE ALLERGIES
  5. LEFLUNOMIDE [Concomitant]
     Indication: ARTHRITIS
     Route: 048
     Dates: start: 2012
  6. OXYBUTYNIN [Concomitant]
     Indication: BLADDER DISORDER
     Route: 065
     Dates: start: 2005
  7. LORATADINE [Concomitant]
     Route: 065
     Dates: start: 2011
  8. LOSARTAN [Concomitant]
     Indication: BLOOD PRESSURE
     Route: 065
     Dates: start: 2011
  9. POTASSIUM [Concomitant]
     Indication: BONE DISORDER
     Route: 065
     Dates: start: 2013
  10. FOLIC ACID [Concomitant]
     Indication: HAIR DISORDER
     Route: 065
     Dates: start: 2013
  11. FOLIC ACID [Concomitant]
     Indication: BONE DISORDER
     Route: 065
     Dates: start: 2013
  12. VITAMIN D [Concomitant]
     Route: 065
     Dates: start: 2005
  13. NITROFURANTOIN [Concomitant]
     Indication: BLADDER DISORDER
     Route: 065
     Dates: start: 2005
  14. FERROUS SULPHATE [Concomitant]
     Indication: MINERAL SUPPLEMENTATION
     Route: 065
     Dates: start: 2012
  15. MAGNESIUM OXIDE [Concomitant]
     Indication: ELECTROLYTE IMBALANCE
     Route: 065
     Dates: start: 2012
  16. FAMOTIDINE [Concomitant]
     Indication: GASTRIC DISORDER
     Route: 065
     Dates: start: 2013
  17. HYDROCODONE [Concomitant]
     Indication: PAIN
     Route: 065
     Dates: start: 2013
  18. ACETAM [Concomitant]
     Indication: PAIN
     Route: 065

REACTIONS (2)
  - Drug ineffective [Recovered/Resolved]
  - Insomnia [Recovering/Resolving]
